FAERS Safety Report 8486089-1 (Version None)
Quarter: 2012Q3

REPORT INFORMATION
  Report Type: 
  Country: None (occurrence: None)
  Receive Date: 20120703
  Receipt Date: 20120626
  Transmission Date: 20120928
  Serious: Yes (Death, Hospitalization)
  Sender: FDA-Public Use
  Company Number: MX-SANOFI-AVENTIS-2012SA045800

PATIENT
  Age: 70 Year
  Sex: Female
  Weight: 65 kg

DRUGS (3)
  1. LOSARTAN POTASSIUM [Concomitant]
     Route: 048
     Dates: start: 20020101, end: 20120120
  2. NIFEDIPINE [Concomitant]
     Route: 048
     Dates: start: 20020101, end: 20120120
  3. LANTUS [Suspect]
     Indication: TYPE 2 DIABETES MELLITUS
     Route: 058
     Dates: start: 20100901, end: 20120120

REACTIONS (2)
  - HYPOTENSION [None]
  - RENAL FAILURE [None]
